FAERS Safety Report 6369863-7 (Version None)
Quarter: 2009Q3

REPORT INFORMATION
  Report Type: 
  Country: None (occurrence: None)
  Receive Date: 20090923
  Receipt Date: 20070822
  Transmission Date: 20100115
  Serious: Yes (Hospitalization)
  Sender: FDA-Public Use
  Company Number: US-ASTRAZENECA-2006UW10690

PATIENT
  Age: 9304 Day
  Sex: Female
  Weight: 112 kg

DRUGS (34)
  1. SEROQUEL [Suspect]
     Indication: BIPOLAR DISORDER
     Dosage: 50- 250 MG DAILY
     Route: 048
     Dates: start: 20030623
  2. SEROQUEL [Suspect]
     Indication: DEPRESSION
     Dosage: 50- 250 MG DAILY
     Route: 048
     Dates: start: 20030623
  3. SEROQUEL [Suspect]
     Indication: SLEEP DISORDER
     Dosage: 50- 250 MG DAILY
     Route: 048
     Dates: start: 20030623
  4. SEROQUEL [Suspect]
     Indication: POST-TRAUMATIC STRESS DISORDER
     Dosage: 50- 250 MG DAILY
     Route: 048
     Dates: start: 20030623
  5. SEROQUEL [Suspect]
     Indication: AFFECTIVE DISORDER
     Dosage: 50- 250 MG DAILY
     Route: 048
     Dates: start: 20030623
  6. CLOZARIL [Concomitant]
  7. HALDOL [Concomitant]
  8. RISPERDAL [Concomitant]
  9. HUMALOG [Concomitant]
     Dosage: 80 U AT MORNING AND 60 U AT NIGHT
     Dates: start: 20030710
  10. EFFEXOR [Concomitant]
     Dates: start: 20031210
  11. DEPAKOTE [Concomitant]
     Dosage: 750 - 1750 MG DAILY
     Route: 048
     Dates: start: 20031210
  12. CYMBALTA [Concomitant]
     Route: 048
  13. VALIUM [Concomitant]
     Route: 048
     Dates: start: 20061003
  14. VICODIN [Concomitant]
     Dosage: 4 TABLETS AS REQUIRED
     Route: 048
  15. KLONOPIN [Concomitant]
     Route: 048
     Dates: start: 20061003
  16. PREMARIN [Concomitant]
     Route: 048
     Dates: start: 20061003
  17. LITHIUM CARBONATE [Concomitant]
     Route: 048
     Dates: start: 20061003
  18. ZOCOR [Concomitant]
     Route: 048
     Dates: start: 20031210
  19. VERAPAMIL [Concomitant]
     Route: 048
     Dates: start: 20030710
  20. POTASSIUM CHLORIDE [Concomitant]
     Dates: start: 20031210
  21. ASPIRIN [Concomitant]
     Route: 048
     Dates: start: 20031210
  22. PAXIL [Concomitant]
     Dates: start: 20031210
  23. INDERAL LA [Concomitant]
     Dates: start: 20031210
  24. NIACIN [Concomitant]
     Dates: start: 20031210
  25. DEMEROL [Concomitant]
     Dosage: AS REQUIRED
     Dates: start: 20031210
  26. PHENERGAN [Concomitant]
     Dosage: AS REQUIRED
     Dates: start: 20031210
  27. ZOMIG [Concomitant]
     Dates: start: 20031210
  28. NORTRIPTYLINE HCL [Concomitant]
     Dates: start: 20030710
  29. BACLOFEN [Concomitant]
     Dates: start: 20031208
  30. CYCLOBENZAPRINE [Concomitant]
     Dates: start: 20031122
  31. NAPROXEN [Concomitant]
     Dates: start: 20031119
  32. PROCHLORPERAZINE [Concomitant]
     Dates: start: 20031208
  33. SINGULAIR [Concomitant]
     Dates: start: 20031213
  34. LIPITOR [Concomitant]
     Dates: start: 20031208

REACTIONS (2)
  - ARRHYTHMIA [None]
  - DIABETES MELLITUS [None]
